FAERS Safety Report 17144917 (Version 1)
Quarter: 2019Q4

REPORT INFORMATION
  Report Type: Report from Study
  Country: BR (occurrence: BR)
  Receive Date: 20191212
  Receipt Date: 20191212
  Transmission Date: 20200122
  Serious: Yes (Other)
  Sender: FDA-Public Use
  Company Number: NVSC2019BR066133

PATIENT
  Age: 49 Year
  Sex: Female

DRUGS (1)
  1. GILENYA [Suspect]
     Active Substance: FINGOLIMOD HYDROCHLORIDE
     Indication: MULTIPLE SCLEROSIS
     Dosage: UNK
     Route: 065
     Dates: start: 20190122, end: 201910

REACTIONS (3)
  - Liver injury [Unknown]
  - Gamma-glutamyltransferase increased [Unknown]
  - Gamma-glutamyltransferase decreased [Recovering/Resolving]

NARRATIVE: CASE EVENT DATE: 201910
